FAERS Safety Report 4772741-8 (Version None)
Quarter: 2005Q3

REPORT INFORMATION
  Report Type: 
  Country: None (occurrence: None)
  Receive Date: 20050919
  Receipt Date: 20050912
  Transmission Date: 20060218
  Serious: Yes (Death)
  Sender: FDA-Public Use
  Company Number: JP-ROCHE-417419

PATIENT
  Age: 64 Year
  Sex: Female

DRUGS (1)
  1. PEGASYS [Suspect]
     Route: 058
     Dates: start: 20050207, end: 20050905

REACTIONS (1)
  - SUBARACHNOID HAEMORRHAGE [None]
